FAERS Safety Report 9637391 (Version 1)
Quarter: 2013Q4

REPORT INFORMATION
  Report Type: Spontaneous
  Country: PL (occurrence: PL)
  Receive Date: 20131022
  Receipt Date: 20131022
  Transmission Date: 20140711
  Serious: Yes (Death, Hospitalization)
  Sender: FDA-Public Use
  Company Number: PHHY2013PL117950

PATIENT
  Age: 64 Year
  Sex: Male

DRUGS (7)
  1. TASIGNA [Suspect]
     Indication: CHRONIC MYELOID LEUKAEMIA
     Dosage: 1 DF, QD
     Route: 048
  2. POLOCARD [Concomitant]
     Dosage: 1 DF, QD
  3. CONTIX [Concomitant]
     Dosage: 1 DF, QD
  4. AREPLEX [Concomitant]
     Dosage: 1 DF, QD
  5. DIAPREL [Concomitant]
     Dosage: 2 DF, QD
  6. KALDYUM [Concomitant]
     Dosage: 1 DF, BID
  7. ZOCOR [Concomitant]
     Dosage: 1 DF, QD

REACTIONS (4)
  - Sudden death [Fatal]
  - Myocardial infarction [Recovered/Resolved]
  - Peripheral vascular disorder [Recovered/Resolved]
  - Arteriosclerosis coronary artery [Recovered/Resolved]
